FAERS Safety Report 4458588-0 (Version None)
Quarter: 2004Q3

REPORT INFORMATION
  Report Type: 
  Country: None (occurrence: None)
  Receive Date: 20040917
  Receipt Date: 20031006
  Transmission Date: 20050211
  Serious: Yes (Hospitalization)
  Sender: FDA-Public Use
  Company Number: US-JNJFOC-20030804928

PATIENT
  Age: 45 Year
  Sex: Female
  Weight: 65.7716 kg

DRUGS (2)
  1. TOPAMAX [Suspect]
     Indication: MIGRAINE
     Dosage: SEE IMAGE
     Route: 048
     Dates: start: 20030416
  2. TOPAMAX [Suspect]
     Indication: MIGRAINE
     Dosage: SEE IMAGE
     Route: 048
     Dates: start: 20030617

REACTIONS (3)
  - DYSURIA [None]
  - NAUSEA [None]
  - NEPHROLITHIASIS [None]
